FAERS Safety Report 8022233-8 (Version None)
Quarter: 2011Q4

REPORT INFORMATION
  Report Type: 
  Country: None (occurrence: None)
  Receive Date: 20111229
  Receipt Date: 20111215
  Transmission Date: 20120403
  Serious: Yes (Hospitalization)
  Sender: FDA-Public Use
  Company Number: 2011120054

PATIENT
  Sex: Female

DRUGS (8)
  1. MUSE [Suspect]
     Indication: ACCIDENTAL EXPOSURE
     Dosage: ORAL
     Route: 048
     Dates: start: 20111206, end: 20111206
  2. OMEPRAZOLE [Concomitant]
  3. METOPROLOL SUCCINATE [Concomitant]
  4. OESTRADIOL [Concomitant]
  5. RAMIPRIL [Concomitant]
  6. DIURAL (FUROSEMIDE) [Concomitant]
  7. TODOLAC (ETODOLAC) [Concomitant]
  8. ALOPAM (OXAZEPAM) [Concomitant]

REACTIONS (2)
  - ACCIDENTAL EXPOSURE [None]
  - ANAPHYLACTIC REACTION [None]
